FAERS Safety Report 18956094 (Version 2)
Quarter: 2021Q2

REPORT INFORMATION
  Report Type: Report from Study
  Country: JP (occurrence: JP)
  Receive Date: 20210301
  Receipt Date: 20210504
  Transmission Date: 20210717
  Serious: Yes (Death, Hospitalization)
  Sender: FDA-Public Use
  Company Number: JP-ASTRAZENECA-2021A087407

PATIENT
  Age: 69 Year
  Sex: Male
  Weight: 63 kg

DRUGS (16)
  1. BRILINTA [Suspect]
     Active Substance: TICAGRELOR
     Indication: ACUTE MYOCARDIAL INFARCTION
     Route: 048
     Dates: start: 20191106, end: 20191106
  2. VALSARTAN. [Concomitant]
     Active Substance: VALSARTAN
     Dosage: NUMBER OF SEPARATE DOSAGES UNKNOWN
     Route: 048
  3. ROZEREM [Concomitant]
     Active Substance: RAMELTEON
     Indication: PROPHYLAXIS
     Dosage: AS REQUIRED
     Route: 048
  4. BRILINTA [Suspect]
     Active Substance: TICAGRELOR
     Indication: ACUTE MYOCARDIAL INFARCTION
     Route: 048
     Dates: start: 20191107
  5. ASPIRIN. [Concomitant]
     Active Substance: ASPIRIN
     Dosage: NUMBER OF SEPARATE DOSAGES UNKNOWN100.0MG ONCE/SINGLE ADMINISTRATION
     Route: 065
     Dates: end: 20200329
  6. CARVEDILOL. [Concomitant]
     Active Substance: CARVEDILOL
     Dosage: NUMBER OF SEPARATE DOSAGES UNKNOWN
     Route: 048
  7. FUROSEMIDE. [Concomitant]
     Active Substance: FUROSEMIDE
     Dosage: NUMBER OF SEPARATE DOSAGES UNKNOWN
     Route: 048
  8. DOPS OD [Concomitant]
     Active Substance: DROXIDOPA
     Dosage: NUMBER OF SEPARATE DOSAGES UNKNOWN
     Route: 048
  9. L?CARBOCISTEINE [Concomitant]
     Active Substance: CARBOCYSTEINE
     Dosage: NUMBER OF SEPARATE DOSAGES UNKNOWN
     Route: 048
     Dates: end: 20200414
  10. AMLODIPINE [Concomitant]
     Active Substance: AMLODIPINE BESYLATE
     Dosage: NUMBER OF SEPARATE DOSAGES UNKNOWN
     Route: 048
     Dates: end: 20200224
  11. NIFEDIPINE CR [Concomitant]
     Active Substance: NIFEDIPINE
     Dosage: NUMBER OF SEPARATE DOSAGES UNKNOWN
     Route: 048
     Dates: start: 20200225
  12. ATORVASTATIN [Concomitant]
     Active Substance: ATORVASTATIN
     Dosage: NUMBER OF SEPARATE DOSAGES UNKNOWN
     Route: 048
  13. FEBURIC [Concomitant]
     Active Substance: FEBUXOSTAT
     Dosage: NUMBER OF SEPARATE DOSAGES UNKNOWN
     Route: 048
  14. PARIET [Concomitant]
     Active Substance: RABEPRAZOLE SODIUM
     Indication: PROPHYLAXIS
     Dosage: NUMBER OF SEPARATE DOSAGES UNKNOWN
     Route: 048
  15. ZETIA [Concomitant]
     Active Substance: EZETIMIBE
     Dosage: NUMBER OF SEPARATE DOSAGES UNKNOWN
     Route: 048
     Dates: start: 20191108
  16. MOHRUS TAPE [Concomitant]
     Active Substance: KETOPROFEN
     Dosage: NUMBER OF SEPARATE DOSAGES UNKNOWN
     Route: 062
     Dates: end: 20200103

REACTIONS (2)
  - Cardio-respiratory arrest [Fatal]
  - Cardiac failure [Recovering/Resolving]

NARRATIVE: CASE EVENT DATE: 20200223
